FAERS Safety Report 17622022 (Version 1)
Quarter: 2020Q2

REPORT INFORMATION
  Report Type: Spontaneous
  Country: JP (occurrence: JP)
  Receive Date: 20200403
  Receipt Date: 20200403
  Transmission Date: 20200713
  Serious: Yes (Other)
  Sender: FDA-Public Use
  Company Number: JP-REGENERON PHARMACEUTICALS, INC.-2020-27530

PATIENT

DRUGS (4)
  1. EYLEA [Suspect]
     Active Substance: AFLIBERCEPT
     Dosage: ONE EYE, Q1MON
     Route: 031
  2. EYLEA [Suspect]
     Active Substance: AFLIBERCEPT
     Indication: AGE-RELATED MACULAR DEGENERATION
     Dosage: ONE EYE, Q1MON
     Route: 031
     Dates: start: 2019, end: 2019
  3. EYLEA [Suspect]
     Active Substance: AFLIBERCEPT
     Dosage: ONE EYE, Q1MON
     Route: 031
     Dates: start: 2020, end: 2020
  4. EYLEA [Suspect]
     Active Substance: AFLIBERCEPT
     Dosage: ONE EYE, Q1MON
     Route: 031
     Dates: start: 2020, end: 2020

REACTIONS (1)
  - Macular hole [Unknown]

NARRATIVE: CASE EVENT DATE: 2020
